FAERS Safety Report 7012494-6 (Version None)
Quarter: 2010Q3

REPORT INFORMATION
  Report Type: 
  Country: None (occurrence: None)
  Receive Date: 20100924
  Receipt Date: 20100916
  Transmission Date: 20110219
  Serious: Yes (Hospitalization, Other)
  Sender: FDA-Public Use
  Company Number: BE-ABBOTT-10P-013-0631944-01

PATIENT
  Sex: Female

DRUGS (7)
  1. HUMIRA [Suspect]
     Indication: CROHN'S DISEASE
     Route: 058
     Dates: start: 20080331, end: 20100222
  2. LORMETAZEPAM [Concomitant]
     Indication: ANXIETY
     Dates: start: 20080401
  3. LORMETAZEPAM [Concomitant]
     Dates: start: 20091201
  4. ISOBETADINE [Concomitant]
     Indication: FEMALE GENITAL TRACT FISTULA
     Dosage: 1 HIP BATH THREE TIMES DAILY
     Dates: start: 20091207
  5. AZATHIOPRINE [Concomitant]
     Indication: CROHN'S DISEASE
     Dosage: 100 MG HIGHEST MAINTAINED DOSE, DAILY
  6. CLEXANE [Concomitant]
     Indication: THROMBOSIS PROPHYLAXIS
     Dates: start: 20100303, end: 20100405
  7. ACETAMINOPHEN [Concomitant]
     Indication: PROCEDURAL PAIN
     Dates: start: 20100303, end: 20100401

REACTIONS (2)
  - SEPSIS [None]
  - SUTURE RELATED COMPLICATION [None]
